FAERS Safety Report 19878360 (Version 1)
Quarter: 2021Q3

REPORT INFORMATION
  Report Type: Spontaneous
  Country: US (occurrence: US)
  Receive Date: 20210924
  Receipt Date: 20210924
  Transmission Date: 20211014
  Serious: Yes (Other)
  Sender: FDA-Public Use
  Company Number: US-ADVANZ PHARMA-202109006297

PATIENT

DRUGS (1)
  1. ZONISAMIDE. [Suspect]
     Active Substance: ZONISAMIDE
     Dosage: UNK, ZONOGRAM 2 YEARS AGO

REACTIONS (3)
  - Condition aggravated [Unknown]
  - Seizure [Unknown]
  - Drug ineffective [Unknown]
